FAERS Safety Report 6019156-2 (Version None)
Quarter: 2008Q4

REPORT INFORMATION
  Report Type: 
  Country: None (occurrence: None)
  Receive Date: 20081224
  Receipt Date: 20081217
  Transmission Date: 20090506
  Serious: Yes (Other)
  Sender: FDA-Public Use
  Company Number: BR-JNJCH-2008057879

PATIENT
  Age: 42 Year
  Sex: Female
  Weight: 70 kg

DRUGS (2)
  1. NICORETTE [Suspect]
     Indication: SMOKING CESSATION THERAPY
     Dosage: TEXT:HALF OF A PATCH
     Route: 062
  2. CORTICOSTEROIDS [Concomitant]
     Indication: BRONCHITIS
     Dosage: TEXT:UNSPECIFIED
     Route: 065

REACTIONS (2)
  - ASPHYXIA [None]
  - MEDICATION ERROR [None]
